FAERS Safety Report 25286514 (Version 1)
Quarter: 2025Q2

REPORT INFORMATION
  Report Type: Spontaneous
  Country: US (occurrence: US)
  Receive Date: 20250509
  Receipt Date: 20250509
  Transmission Date: 20250717
  Serious: Yes (Other)
  Sender: NOVO NORDISK
  Company Number: US-NOVOPROD-1424518

PATIENT
  Sex: Male

DRUGS (1)
  1. REBINYN [Suspect]
     Active Substance: COAGULATION FACTOR IX RECOMBINANT HUMAN
     Indication: Factor IX deficiency

REACTIONS (1)
  - Haemorrhage [Not Recovered/Not Resolved]
